FAERS Safety Report 5717972-5 (Version None)
Quarter: 2008Q2

REPORT INFORMATION
  Report Type: 
  Country: None (occurrence: None)
  Receive Date: 20080425
  Receipt Date: 20080418
  Transmission Date: 20081010
  Serious: Yes (Hospitalization)
  Sender: FDA-Public Use
  Company Number: A0724399A

PATIENT
  Age: 62 Year
  Sex: Female

DRUGS (10)
  1. MELPHALAN [Suspect]
     Indication: MULTIPLE MYELOMA
     Route: 042
     Dates: start: 20070830, end: 20070831
  2. PALONOSETRON [Suspect]
     Indication: PROPHYLAXIS OF NAUSEA AND VOMITING
     Dosage: .25MG SINGLE DOSE
     Route: 042
     Dates: start: 20070830, end: 20070830
  3. PLACEBO (NACL 0.9%) [Suspect]
     Indication: PROPHYLAXIS OF NAUSEA AND VOMITING
     Route: 042
     Dates: start: 20070831, end: 20070901
  4. DEXAMETHASONE TAB [Concomitant]
     Dosage: 20MG PER DAY
     Route: 042
     Dates: start: 20070830, end: 20070831
  5. SYNTHROID [Concomitant]
     Indication: HYPOTHYROIDISM
     Dosage: .88MG PER DAY
     Route: 048
  6. PROTONIX [Concomitant]
     Indication: HYPERCHLORHYDRIA
     Dosage: 40MG PER DAY
     Route: 048
  7. BACLOFEN [Concomitant]
     Indication: NECK PAIN
     Dosage: 10MG PER DAY
     Route: 048
  8. METHOCARBAMOL [Concomitant]
     Indication: NECK PAIN
     Dosage: 750MG PER DAY
     Route: 048
  9. OXYCONTIN [Concomitant]
     Indication: NECK PAIN
     Dosage: 40MG PER DAY
     Route: 048
  10. NORCO [Concomitant]
     Indication: NECK PAIN
     Route: 048

REACTIONS (6)
  - DEHYDRATION [None]
  - MUCOSAL INFLAMMATION [None]
  - NAUSEA [None]
  - PANCYTOPENIA [None]
  - TRANSPLANT [None]
  - VOMITING [None]
